FAERS Safety Report 25659974 (Version 3)
Quarter: 2025Q4

REPORT INFORMATION
  Report Type: Report from Study
  Country: KR (occurrence: KR)
  Receive Date: 20250808
  Receipt Date: 20251120
  Transmission Date: 20260118
  Serious: Yes (Death, Life-Threatening, Other)
  Sender: ABBVIE
  Company Number: KR-ABBVIE-6406462

PATIENT
  Age: 84 Year
  Sex: Male
  Weight: 63 kg

DRUGS (76)
  1. VENCLEXTA [Suspect]
     Active Substance: VENETOCLAX
     Indication: Acute myeloid leukaemia
     Route: 048
     Dates: start: 20250327, end: 20250327
  2. VENCLEXTA [Suspect]
     Active Substance: VENETOCLAX
     Indication: Acute myeloid leukaemia
     Route: 048
     Dates: start: 20250325, end: 20250325
  3. VENCLEXTA [Suspect]
     Active Substance: VENETOCLAX
     Indication: Acute myeloid leukaemia
     Route: 048
     Dates: start: 20250326, end: 20250326
  4. VENCLEXTA [Suspect]
     Active Substance: VENETOCLAX
     Indication: Acute myeloid leukaemia
     Route: 048
     Dates: start: 20250401, end: 20250417
  5. VENCLEXTA [Suspect]
     Active Substance: VENETOCLAX
     Indication: Acute myeloid leukaemia
     Route: 048
     Dates: start: 20250328, end: 20250328
  6. VENCLEXTA [Suspect]
     Active Substance: VENETOCLAX
     Indication: Acute myeloid leukaemia
     Route: 048
     Dates: start: 20250508, end: 202507
  7. VENCLEXTA [Suspect]
     Active Substance: VENETOCLAX
     Indication: Acute myeloid leukaemia
     Route: 048
     Dates: start: 20250418, end: 20250418
  8. Feroba you sr [Concomitant]
     Indication: Anaemia
     Route: 048
     Dates: start: 20250326, end: 20250528
  9. SILODOSIN [Concomitant]
     Active Substance: SILODOSIN
     Indication: Pollakiuria
     Route: 048
     Dates: start: 20250415, end: 20250804
  10. VFEND [Concomitant]
     Active Substance: VORICONAZOLE
     Indication: Pneumonia
     Route: 048
     Dates: start: 20250709, end: 20250803
  11. Ultracet er semi [Concomitant]
     Indication: Peripheral sensory neuropathy
     Route: 048
     Dates: start: 20250609, end: 20250624
  12. Casfung [Concomitant]
     Indication: Pyrexia
     Route: 042
     Dates: start: 20250331, end: 20250417
  13. PROPACETAMOL HYDROCHLORIDE [Concomitant]
     Active Substance: PROPACETAMOL HYDROCHLORIDE
     Indication: Pyrexia
     Route: 042
     Dates: start: 20250329, end: 20250401
  14. METOCLOPRAMIDE HYDROCHLORIDE [Concomitant]
     Active Substance: METOCLOPRAMIDE HYDROCHLORIDE
     Indication: Nausea
     Dosage: 2 ML
     Route: 042
     Dates: start: 20250711, end: 20250804
  15. METOCLOPRAMIDE HYDROCHLORIDE [Concomitant]
     Active Substance: METOCLOPRAMIDE HYDROCHLORIDE
     Indication: Nausea
     Dosage: 2 ML
     Route: 042
     Dates: start: 20250326, end: 20250414
  16. MAXIPIME [Concomitant]
     Active Substance: CEFEPIME HYDROCHLORIDE
     Indication: Pyrexia
     Dosage: TIME INTERVAL: 0.33333333 DAYS: 1 G
     Route: 048
     Dates: start: 20250608, end: 20250617
  17. MAXIPIME [Concomitant]
     Active Substance: CEFEPIME HYDROCHLORIDE
     Indication: Pyrexia
     Dosage: TIME INTERVAL: 0.33333333 DAYS: 1 G
     Route: 042
     Dates: start: 20250731, end: 20250801
  18. MAXIPIME [Concomitant]
     Active Substance: CEFEPIME HYDROCHLORIDE
     Indication: Pyrexia
     Dosage: TIME INTERVAL: 0.33333333 DAYS: 1 G
     Route: 042
     Dates: start: 20250326, end: 20250408
  19. Dulackhan easy [Concomitant]
     Indication: Constipation
     Route: 048
     Dates: start: 20250512, end: 20250528
  20. Dulackhan easy [Concomitant]
     Indication: Constipation
     Dosage: TIME INTERVAL: 0.33333333 DAYS
     Route: 048
     Dates: start: 20250717, end: 20250730
  21. VANCOCIN [Concomitant]
     Active Substance: VANCOMYCIN HYDROCHLORIDE
     Indication: Pyrexia
     Route: 042
     Dates: start: 20250409, end: 20250417
  22. MAGNESIUM HYDROXIDE [Concomitant]
     Active Substance: MAGNESIUM HYDROXIDE
     Indication: Constipation
     Route: 048
     Dates: start: 20250512, end: 20250528
  23. DIFLUCAN [Concomitant]
     Active Substance: FLUCONAZOLE
     Indication: Infection prophylaxis
     Dosage: 50 MG
     Route: 048
     Dates: start: 20250508, end: 20250729
  24. NOXAFIL [Concomitant]
     Active Substance: POSACONAZOLE
     Indication: Infection prophylaxis
     Dosage: 100 MG
     Route: 048
     Dates: start: 20250325, end: 20250422
  25. Norpin [Concomitant]
     Indication: Blood pressure decreased
     Dosage: 4 ML
     Route: 042
     Dates: start: 20250802
  26. Fotagel [Concomitant]
     Indication: Diarrhoea
     Dosage: TIME INTERVAL: 0.33333333 DAYS: SUSPENSION
     Route: 048
     Dates: start: 20250730
  27. Fotagel [Concomitant]
     Indication: Diarrhoea
     Dosage: TIME INTERVAL: 0.33333333 DAYS: SUSPENSION
     Route: 048
     Dates: start: 20250328, end: 20250405
  28. NALOXONE HYDROCHLORIDE\OXYCODONE HYDROCHLORIDE [Concomitant]
     Active Substance: NALOXONE HYDROCHLORIDE\OXYCODONE HYDROCHLORIDE
     Indication: Peripheral sensory neuropathy
     Dosage: PR 5/2.5MG
     Route: 048
     Dates: start: 20250618, end: 20250624
  29. NALOXONE HYDROCHLORIDE\OXYCODONE HYDROCHLORIDE [Concomitant]
     Active Substance: NALOXONE HYDROCHLORIDE\OXYCODONE HYDROCHLORIDE
     Indication: Peripheral sensory neuropathy
     Dosage: PR 5/2.5MG
     Route: 048
     Dates: start: 20250730
  30. ALLOPURINOL [Concomitant]
     Active Substance: ALLOPURINOL
     Indication: Prophylaxis
     Route: 048
     Dates: start: 20250325
  31. ZYPREXA [Concomitant]
     Active Substance: OLANZAPINE
     Indication: Nausea
     Route: 048
     Dates: start: 20250328, end: 20250330
  32. Cacepin [Concomitant]
     Indication: Insomnia
     Route: 048
     Dates: start: 20250729, end: 20250803
  33. Mytonin [Concomitant]
     Indication: Pollakiuria
     Dosage: TIME INTERVAL: 0.33333333 DAYS
     Route: 048
     Dates: start: 20250409, end: 20250415
  34. METHYLPREDNISOLONE [Concomitant]
     Active Substance: METHYLPREDNISOLONE
     Indication: Immune reconstitution inflammatory syndrome
     Dosage: 125 MG
     Route: 042
     Dates: start: 20250625, end: 20250709
  35. Megerol [Concomitant]
     Indication: Decreased appetite
     Dosage: SUSPENSION
     Route: 048
     Dates: start: 20250415, end: 20250506
  36. MIRABEGRON [Concomitant]
     Active Substance: MIRABEGRON
     Indication: Pollakiuria
     Dosage: PR
     Route: 048
     Dates: start: 20250703, end: 20250803
  37. PRUCALOPRIDE SUCCINATE [Concomitant]
     Active Substance: PRUCALOPRIDE SUCCINATE
     Indication: Constipation
     Dosage: M
     Route: 048
     Dates: start: 20250624, end: 20250626
  38. Ursa daewoong [Concomitant]
     Indication: Blood bilirubin increased
     Route: 048
     Dates: start: 20250320, end: 20250506
  39. RACECADOTRIL [Concomitant]
     Active Substance: RACECADOTRIL
     Indication: Diarrhoea
     Dosage: TIME INTERVAL: 0.33333333 DAYS
     Route: 048
     Dates: start: 20250401, end: 20250404
  40. Vizadakin [Concomitant]
     Indication: Acute myeloid leukaemia
     Route: 048
     Dates: start: 20250710, end: 20250716
  41. Vizadakin [Concomitant]
     Indication: Acute myeloid leukaemia
     Route: 042
     Dates: start: 20250508, end: 20250514
  42. Vizadakin [Concomitant]
     Indication: Acute myeloid leukaemia
     Route: 042
     Dates: start: 20250325, end: 20250331
  43. Vacrax [Concomitant]
     Indication: Infection prophylaxis
     Dosage: 200 MG
     Route: 048
     Dates: start: 20250325, end: 20250803
  44. Whanin clonazepam [Concomitant]
     Indication: Insomnia
     Route: 048
     Dates: start: 20250408, end: 20250511
  45. AVIBACTAM SODIUM\CEFTAZIDIME [Concomitant]
     Active Substance: AVIBACTAM SODIUM\CEFTAZIDIME
     Indication: Haematological infection
     Dosage: TIME INTERVAL: 0.33333333 DAYS: 2G/0.5G
     Route: 042
     Dates: start: 20250801
  46. QUETIAPINE FUMARATE [Concomitant]
     Active Substance: QUETIAPINE FUMARATE
     Indication: Insomnia
     Route: 048
     Dates: start: 20250605, end: 20250803
  47. ORNITHINE ASPARTATE [Concomitant]
     Active Substance: ORNITHINE ASPARTATE
     Indication: Blood bilirubin increased
     Dosage: 500MG/5ML
     Route: 042
     Dates: start: 20250707, end: 20250714
  48. ORNITHINE ASPARTATE [Concomitant]
     Active Substance: ORNITHINE ASPARTATE
     Indication: Blood bilirubin increased
     Dosage: 500MG/5ML
     Route: 042
     Dates: start: 20250320, end: 20250424
  49. Encover [Concomitant]
     Indication: Decreased appetite
     Dosage: SOLUTION
     Route: 048
     Dates: start: 20250326, end: 20250409
  50. VANCOMYCIN HYDROCHLORIDE [Concomitant]
     Active Substance: VANCOMYCIN HYDROCHLORIDE
     Indication: Pyrexia
     Route: 042
     Dates: start: 20250611, end: 20250616
  51. ACTIFED (PSEUDOEPHEDRINE HYDROCHLORIDE\TRIPROLIDINE HYDROCHLORIDE) [Concomitant]
     Active Substance: PSEUDOEPHEDRINE HYDROCHLORIDE\TRIPROLIDINE HYDROCHLORIDE
     Indication: Nasopharyngitis
     Route: 048
     Dates: start: 20250408, end: 20250505
  52. Mulex [Concomitant]
     Indication: Compression fracture
     Dosage: TIME INTERVAL: 0.33333333 DAYS
     Route: 048
     Dates: start: 20250623, end: 20250701
  53. RIVOTRIL [Concomitant]
     Active Substance: CLONAZEPAM
     Indication: Nausea
     Route: 048
     Dates: start: 20250512, end: 20250528
  54. LEVOFLOXACIN [Concomitant]
     Active Substance: LEVOFLOXACIN
     Indication: Infection prophylaxis
     Route: 048
     Dates: start: 20250325, end: 20250730
  55. Samnam loperamide [Concomitant]
     Indication: Diarrhoea
     Route: 048
     Dates: start: 20250329, end: 20250408
  56. SULFAMETHOXAZOLE\TRIMETHOPRIM [Concomitant]
     Active Substance: SULFAMETHOXAZOLE\TRIMETHOPRIM
     Indication: Infection prophylaxis
     Route: 048
     Dates: start: 20250325, end: 20250803
  57. LENOGRASTIM [Concomitant]
     Active Substance: LENOGRASTIM
     Indication: Neutrophil count decreased
     Dosage: 100MCG
     Route: 042
     Dates: start: 20250529, end: 20250623
  58. Tazoperan [Concomitant]
     Indication: Pyrexia
     Route: 042
     Dates: start: 20250408, end: 20250409
  59. VFEND [Concomitant]
     Active Substance: VORICONAZOLE
     Indication: Pneumonia
     Dosage: UNIT DOSE: 1.27 VIAL
     Route: 042
     Dates: start: 20250617, end: 20250709
  60. VFEND [Concomitant]
     Active Substance: VORICONAZOLE
     Indication: Pneumonia
     Route: 042
     Dates: start: 20250805
  61. Tylicol [Concomitant]
     Indication: Compression fracture
     Dosage: FREQUENCY TEXT: PRN
     Route: 042
     Dates: start: 20250607, end: 20250615
  62. Tylicol [Concomitant]
     Indication: Compression fracture
     Dosage: FREQUENCY TEXT: PRN
     Route: 042
     Dates: start: 20250326, end: 20250401
  63. Tylicol [Concomitant]
     Indication: Compression fracture
     Dosage: FREQUENCY TEXT: PRN
     Route: 042
     Dates: start: 20250730
  64. LASIX [Concomitant]
     Active Substance: FUROSEMIDE
     Indication: Oedema
     Route: 042
     Dates: start: 20250609, end: 20250622
  65. Yuhan meropen [Concomitant]
     Indication: Pyrexia
     Dosage: TIME INTERVAL: 0.33333333 DAYS: 500 MG
     Route: 042
     Dates: start: 20250409, end: 20250417
  66. Fedulow [Concomitant]
     Indication: Prophylaxis
     Dosage: SUSPENSION 20 ML
     Route: 048
     Dates: start: 20250522, end: 20250803
  67. DIGOXIN [Concomitant]
     Active Substance: DIGOXIN
     Indication: Atrial fibrillation
     Dosage: ASIA
     Route: 042
     Dates: start: 20250803
  68. MORPHINE HYDROCHLORIDE [Concomitant]
     Active Substance: MORPHINE HYDROCHLORIDE
     Indication: Compression fracture
     Dosage: 5MG/0.5ML, BC
     Route: 042
     Dates: start: 20250801
  69. RAMOSETRON HYDROCHLORIDE [Concomitant]
     Active Substance: RAMOSETRON HYDROCHLORIDE
     Indication: Prophylaxis of nausea and vomiting
     Dosage: 0.3MG (VIAL)
     Route: 042
     Dates: start: 20250325, end: 20250716
  70. LENOGRASTIM [Concomitant]
     Active Substance: LENOGRASTIM
     Indication: Neutrophil count decreased
     Dosage: 250MCG
     Route: 042
     Dates: start: 20250717
  71. LENOGRASTIM [Concomitant]
     Active Substance: LENOGRASTIM
     Indication: Neutrophil count decreased
     Dosage: 250MCG
     Route: 042
     Dates: start: 20250411, end: 20250421
  72. Casfung [Concomitant]
     Indication: Pyrexia
     Route: 042
     Dates: start: 20250610, end: 20250616
  73. LYRICA [Concomitant]
     Active Substance: PREGABALIN
     Indication: Peripheral sensory neuropathy
     Route: 048
     Dates: start: 20250609, end: 20250619
  74. URSODIOL [Concomitant]
     Active Substance: URSODIOL
     Indication: Liver function test increased
     Route: 048
     Dates: start: 20250707, end: 20250713
  75. Godex [Concomitant]
     Indication: Liver function test increased
     Route: 048
     Dates: start: 20250320, end: 20250506
  76. Godex [Concomitant]
     Indication: Liver function test increased
     Route: 048
     Dates: start: 20250707, end: 20250710

REACTIONS (1)
  - Sepsis [Fatal]

NARRATIVE: CASE EVENT DATE: 20250802
